FAERS Safety Report 5713145-0 (Version None)
Quarter: 2008Q2

REPORT INFORMATION
  Report Type: 
  Country: None (occurrence: None)
  Receive Date: 20080422
  Receipt Date: 20080411
  Transmission Date: 20081010
  Serious: Yes (Life-Threatening)
  Sender: FDA-Public Use
  Company Number: GB-WYE-G00906208

PATIENT
  Age: 67 Year
  Sex: Female
  Weight: 63 kg

DRUGS (6)
  1. VENLAFAXINE HYDROCHLORIDE [Suspect]
     Indication: DEPRESSION
     Dates: start: 20050101, end: 20060303
  2. TEMAZEPAM [Concomitant]
     Indication: INSOMNIA
     Dosage: 40MG DAILY
     Dates: end: 20060303
  3. GLICLAZIDE [Concomitant]
     Indication: TYPE 2 DIABETES MELLITUS
     Dosage: 160MG DAILY
  4. LISINOPRIL [Concomitant]
     Indication: HYPERTENSION
  5. LANTUS [Suspect]
     Indication: TYPE 2 DIABETES MELLITUS
     Dosage: 30IU, FREQUENCY UNKNOWN
     Route: 058
     Dates: start: 20051220, end: 20060221
  6. FUROSEMIDE [Concomitant]
     Indication: RENAL DISORDER
     Route: 048

REACTIONS (7)
  - DYSPNOEA [None]
  - HYPERSENSITIVITY [None]
  - INJECTION SITE URTICARIA [None]
  - OEDEMA PERIPHERAL [None]
  - PRURITUS [None]
  - RASH GENERALISED [None]
  - SWELLING [None]
